FAERS Safety Report 5122455-X (Version None)
Quarter: 2006Q4

REPORT INFORMATION
  Report Type: 
  Country: None (occurrence: None)
  Receive Date: 20061004
  Receipt Date: 20060925
  Transmission Date: 20070319
  Serious: Yes (Hospitalization)
  Sender: FDA-Public Use
  Company Number: 230348

PATIENT
  Age: 47 Year
  Sex: Male
  Weight: 68 kg

DRUGS (3)
  1. ERLOTINIB(ERLOTINIB) TABLET [Suspect]
     Indication: NEOPLASM MALIGNANT
     Dates: end: 20060301
  2. AVASTIN [Suspect]
     Indication: NEOPLASM MALIGNANT
     Dates: end: 20060301
  3. CISPLATIN [Suspect]
     Indication: NEOPLASM MALIGNANT
     Dates: end: 20060301

REACTIONS (5)
  - DYSPHAGIA [None]
  - ODYNOPHAGIA [None]
  - ORAL INTAKE REDUCED [None]
  - PAROTITIS [None]
  - RADIATION INJURY [None]
